FAERS Safety Report 13109943 (Version 1)
Quarter: 2017Q1

REPORT INFORMATION
  Report Type: Spontaneous
  Country: US (occurrence: US)
  Receive Date: 20170112
  Receipt Date: 20170112
  Transmission Date: 20170428
  Serious: Yes (Other)
  Sender: FDA-Public Use
  Company Number: US-ROCHE-1099749

PATIENT
  Sex: Female

DRUGS (9)
  1. NITROGLYCERIN. [Concomitant]
     Active Substance: NITROGLYCERIN
     Route: 041
  2. ACTIVASE [Suspect]
     Active Substance: ALTEPLASE
     Dosage: DRIP OVER FIRST HOUR.
     Route: 041
  3. ACTIVASE [Suspect]
     Active Substance: ALTEPLASE
     Dosage: 20 MG PER HOUR THEREAFTER TIMES 2
     Route: 041
  4. LIDOCAINE. [Concomitant]
     Active Substance: LIDOCAINE
     Route: 040
  5. LIDOCAINE. [Concomitant]
     Active Substance: LIDOCAINE
     Route: 041
  6. ACTIVASE [Suspect]
     Active Substance: ALTEPLASE
     Indication: ACUTE MYOCARDIAL INFARCTION
     Route: 040
  7. LIDOCAINE. [Concomitant]
     Active Substance: LIDOCAINE
     Route: 041
  8. MORPHINE SULPHATE DRIP [Concomitant]
     Route: 041
  9. HEPARIN [Concomitant]
     Active Substance: HEPARIN SODIUM
     Dosage: 5000 MG BOLUS FOLLOWED BY 1000 MGS IV PER HOUR.
     Route: 040

REACTIONS (1)
  - Ventricular extrasystoles [Unknown]
